FAERS Safety Report 14740065 (Version 1)
Quarter: 2018Q2

REPORT INFORMATION
  Report Type: Spontaneous
  Country: US (occurrence: US)
  Receive Date: 20180404
  Receipt Date: 20180404
  Transmission Date: 20180711
  Serious: No
  Sender: FDA-Public Use
  Company Number: None

PATIENT
  Age: 65 Year
  Sex: Female

DRUGS (1)
  1. IBRANCE [Suspect]
     Active Substance: PALBOCICLIB
     Indication: BREAST CANCER
     Dosage: 125MG ONCE DAILY WITH FOOD FOR 21 DAYS OF 28 DAY CYCLE BY MOUTH
     Route: 048
     Dates: start: 201707

REACTIONS (2)
  - Glossodynia [None]
  - Oral pain [None]

NARRATIVE: CASE EVENT DATE: 201707
